FAERS Safety Report 19454918 (Version 1)
Quarter: 2021Q2

REPORT INFORMATION
  Report Type: Spontaneous
  Country: IL (occurrence: IL)
  Receive Date: 20210623
  Receipt Date: 20210623
  Transmission Date: 20210717
  Serious: Yes (Other)
  Sender: FDA-Public Use
  Company Number: IL-DUCHESNAY-2021IL000116

PATIENT
  Age: 38 Year
  Sex: Female

DRUGS (1)
  1. DICLECTIN [Suspect]
     Active Substance: DOXYLAMINE SUCCINATE\PYRIDOXINE HYDROCHLORIDE
     Indication: MORNING SICKNESS
     Route: 048

REACTIONS (3)
  - Blood thyroid stimulating hormone decreased [Unknown]
  - Hypothalamo-pituitary disorder [Unknown]
  - Thyroxine free decreased [Unknown]
